FAERS Safety Report 23047409 (Version 2)
Quarter: 2023Q4

REPORT INFORMATION
  Report Type: Report from Study
  Country: CO (occurrence: CO)
  Receive Date: 20231010
  Receipt Date: 20231118
  Transmission Date: 20240110
  Serious: Yes (Life-Threatening, Hospitalization, Other)
  Sender: FDA-Public Use
  Company Number: CO-ABBVIE-4288211

PATIENT
  Age: 72 Year
  Sex: Male
  Weight: 63 kg

DRUGS (7)
  1. VENCLEXTA [Suspect]
     Active Substance: VENETOCLAX
     Indication: Chronic lymphocytic leukaemia refractory
     Dosage: STRENGTH: 100 MG
     Route: 048
     Dates: start: 20210928, end: 20230824
  2. VENCLEXTA [Suspect]
     Active Substance: VENETOCLAX
     Indication: Chronic lymphocytic leukaemia refractory
     Dosage: FORM STRENGTH 100MG, START DATE 2023
     Route: 048
     Dates: end: 20231028
  3. METOPROLOL [Concomitant]
     Active Substance: METOPROLOL
     Indication: Infarction
     Route: 048
     Dates: start: 2013
  4. ROSUVASTATIN [Concomitant]
     Active Substance: ROSUVASTATIN
     Indication: Prophylaxis
     Dosage: FORM STRENGTH: 40MG
     Route: 048
     Dates: start: 2013
  5. ESOMEPRAZOLE [Concomitant]
     Active Substance: ESOMEPRAZOLE
     Indication: Gastrointestinal disorder prophylaxis
     Dosage: 1 TABLET PER DAY
     Route: 048
     Dates: start: 2013
  6. SPIRONOLACTONE [Concomitant]
     Active Substance: SPIRONOLACTONE
     Indication: Infarction
     Dosage: HALF TABLET EVERY NIGHT
     Route: 048
     Dates: start: 2013
  7. DAPAGLIFLOZIN [Concomitant]
     Active Substance: DAPAGLIFLOZIN
     Indication: Blood glucose increased
     Dosage: 1 TABLET BEFORE BREAKFAST
     Route: 048

REACTIONS (9)
  - Urethral haemorrhage [Recovering/Resolving]
  - Urinary tract infection [Recovering/Resolving]
  - Vomiting [Recovered/Resolved]
  - Blood glucose increased [Recovering/Resolving]
  - Feeling cold [Recovered/Resolved]
  - Hyperhidrosis [Recovered/Resolved]
  - Dizziness [Recovered/Resolved]
  - Haemorrhage [Recovering/Resolving]
  - Discouragement [Recovered/Resolved]

NARRATIVE: CASE EVENT DATE: 20230124
